FAERS Safety Report 21060458 (Version 2)
Quarter: 2022Q4

REPORT INFORMATION
  Report Type: Spontaneous
  Country: US (occurrence: US)
  Receive Date: 20220708
  Receipt Date: 20221110
  Transmission Date: 20230112
  Serious: No
  Sender: FDA-Public Use
  Company Number: US-SA-SAC20220705001394

PATIENT
  Sex: Female

DRUGS (2)
  1. DUPIXENT [Suspect]
     Active Substance: DUPILUMAB
     Indication: Asthma
     Dosage: UNK, QOW, 200MG/1.14 ML QOW
     Route: 058
     Dates: start: 20220528
  2. DUPIXENT [Suspect]
     Active Substance: DUPILUMAB
     Indication: Asthma

REACTIONS (5)
  - Asthma [Unknown]
  - Impaired quality of life [Unknown]
  - Arthralgia [Unknown]
  - Discomfort [Unknown]
  - Sinusitis [Unknown]
